FAERS Safety Report 19545196 (Version 3)
Quarter: 2021Q3

REPORT INFORMATION
  Report Type: Report from Study
  Country: US (occurrence: US)
  Receive Date: 20210713
  Receipt Date: 20210916
  Transmission Date: 20211014
  Serious: No
  Sender: FDA-Public Use
  Company Number: NVSC2021US155805

PATIENT
  Sex: Female

DRUGS (2)
  1. PIQRAY [Suspect]
     Active Substance: ALPELISIB
     Indication: BREAST CANCER
     Dosage: 300 MG, QD
     Route: 048
     Dates: start: 202106
  2. PIQRAY [Suspect]
     Active Substance: ALPELISIB
     Dosage: 150 MG
     Route: 048

REACTIONS (13)
  - Somnolence [Unknown]
  - Constipation [Unknown]
  - Fatigue [Unknown]
  - Dysphagia [Unknown]
  - Eating disorder [Unknown]
  - Diarrhoea [Unknown]
  - Weight decreased [Unknown]
  - Vomiting [Unknown]
  - Stomatitis [Unknown]
  - Malaise [Unknown]
  - Abdominal pain upper [Unknown]
  - Headache [Unknown]
  - Product dose omission issue [Unknown]
